FAERS Safety Report 4440977-1 (Version None)
Quarter: 2004Q3

REPORT INFORMATION
  Report Type: 
  Country: None (occurrence: None)
  Receive Date: 20040728
  Receipt Date: 20040510
  Transmission Date: 20050211
  Serious: No
  Sender: FDA-Public Use
  Company Number: USA040465178

PATIENT
  Age: 5 Year
  Sex: Female
  Weight: 32 kg

DRUGS (3)
  1. STRATTERA [Suspect]
     Indication: ATTENTION DEFICIT/HYPERACTIVITY DISORDER
     Dosage: 18 MG/1 DAY
     Dates: start: 20040301
  2. FLOVENT [Concomitant]
  3. CORTICOSTEROID NOS [Concomitant]

REACTIONS (5)
  - FLUSHING [None]
  - NAUSEA [None]
  - PILOERECTION [None]
  - PRESCRIBED OVERDOSE [None]
  - SOMNOLENCE [None]
